FAERS Safety Report 17435218 (Version 2)
Quarter: 2020Q1

REPORT INFORMATION
  Report Type: Report from Study
  Country: US (occurrence: US)
  Receive Date: 20200219
  Receipt Date: 20200316
  Transmission Date: 20200409
  Serious: Yes (Hospitalization)
  Sender: FDA-Public Use
  Company Number: US-B.I. PHARMACEUTICALS,INC./RIDGEFIELD-2019-BI-102990

PATIENT
  Age: 76 Year
  Sex: Female

DRUGS (1)
  1. OFEV [Suspect]
     Active Substance: NINTEDANIB
     Indication: IDIOPATHIC PULMONARY FIBROSIS
     Route: 048
     Dates: start: 20190918

REACTIONS (13)
  - Epigastric discomfort [Not Recovered/Not Resolved]
  - Cardiac failure congestive [Unknown]
  - Skin haemorrhage [Unknown]
  - Haemoglobin decreased [Unknown]
  - Somnolence [Not Recovered/Not Resolved]
  - Dyspnoea exertional [Unknown]
  - Product use issue [Unknown]
  - Diarrhoea [Not Recovered/Not Resolved]
  - Urinary tract infection [Unknown]
  - Blood count abnormal [Not Recovered/Not Resolved]
  - Dyspnoea [Unknown]
  - Skin laceration [Unknown]
  - Gastric disorder [Unknown]

NARRATIVE: CASE EVENT DATE: 20190918
